FAERS Safety Report 23867734 (Version 1)
Quarter: 2024Q2

REPORT INFORMATION
  Report Type: Spontaneous
  Country: RU (occurrence: RU)
  Receive Date: 20240517
  Receipt Date: 20240517
  Transmission Date: 20240716
  Serious: Yes (Hospitalization)
  Sender: FDA-Public Use
  Company Number: RU-Vifor (International) Inc.-VIT-2024-04320

PATIENT
  Sex: Male

DRUGS (2)
  1. VELPHORO [Suspect]
     Active Substance: SUCROFERRIC OXYHYDROXIDE
     Indication: Hyperphosphataemia
     Dosage: 2 TABLETS TID
     Route: 048
     Dates: start: 202205
  2. VELPHORO [Suspect]
     Active Substance: SUCROFERRIC OXYHYDROXIDE
     Dosage: 9 VELPHORO TABLETS DISSOLVED IN HOT WATER
     Route: 048
     Dates: start: 20240502

REACTIONS (6)
  - Hypotension [Recovered/Resolved]
  - Blood loss anaemia [Recovered/Resolved]
  - Duodenal ulcer haemorrhage [Recovered/Resolved with Sequelae]
  - Vomiting [Recovered/Resolved]
  - Diarrhoea [Recovered/Resolved]
  - Overdose [Unknown]

NARRATIVE: CASE EVENT DATE: 20240502
